FAERS Safety Report 11895702 (Version 1)
Quarter: 2016Q1

REPORT INFORMATION
  Report Type: Spontaneous
  Country: US (occurrence: US)
  Receive Date: 20160107
  Receipt Date: 20160107
  Transmission Date: 20160526
  Serious: No
  Sender: FDA-Public Use
  Company Number: US-BAYER-2015-493865

PATIENT
  Age: 18 Year
  Sex: Female
  Weight: 65.76 kg

DRUGS (5)
  1. AFRIN SEVERE CONGESTION [Suspect]
     Active Substance: OXYMETAZOLINE HYDROCHLORIDE
     Indication: RHINORRHOEA
     Dosage: 1 DF, ONCE
     Route: 045
     Dates: start: 20151219, end: 20151219
  2. AFRIN SEVERE CONGESTION [Suspect]
     Active Substance: OXYMETAZOLINE HYDROCHLORIDE
     Indication: SINUSITIS
  3. SINGULAIR [Concomitant]
     Active Substance: MONTELUKAST SODIUM
  4. AFRIN ORIGINAL [Suspect]
     Active Substance: OXYMETAZOLINE HYDROCHLORIDE
     Indication: RHINORRHOEA
     Dosage: 1 DF, ONCE
     Route: 045
     Dates: start: 20151219, end: 20151219
  5. CLARITIN-D 12 HOUR [Suspect]
     Active Substance: LORATADINE\PSEUDOEPHEDRINE SULFATE
     Indication: RHINORRHOEA
     Dosage: 1 DF, QD (EVERY 24 HOURS)
     Route: 048

REACTIONS (9)
  - Lacrimation increased [Recovered/Resolved]
  - Product use issue [None]
  - Drug ineffective [None]
  - Nasal discomfort [Recovered/Resolved]
  - Pain [Recovered/Resolved]
  - Crying [Recovered/Resolved]
  - Screaming [Recovered/Resolved]
  - Oropharyngeal pain [Recovered/Resolved]
  - Drug ineffective [None]

NARRATIVE: CASE EVENT DATE: 20151219
